FAERS Safety Report 4599390-9 (Version None)
Quarter: 2005Q1

REPORT INFORMATION
  Report Type: 
  Country: None (occurrence: None)
  Receive Date: 20050303
  Receipt Date: 20050303
  Transmission Date: 20050727
  Serious: No
  Sender: FDA-Public Use
  Company Number: None

PATIENT
  Age: 61 Year
  Sex: Male
  Weight: 80 kg

DRUGS (1)
  1. VALPROIC ACID 500 MG 0121-0675-16 [Suspect]
     Indication: CONVULSION
     Dosage: 500 MG EVERY 8 HOURS OTHER
     Dates: start: 20050204, end: 20050216

REACTIONS (1)
  - THROMBOCYTOPENIA [None]
